FAERS Safety Report 7759652-0 (Version None)
Quarter: 2011Q3

REPORT INFORMATION
  Report Type: 
  Country: None (occurrence: None)
  Receive Date: 20110919
  Receipt Date: 20110913
  Transmission Date: 20111222
  Serious: Yes (Hospitalization, Other)
  Sender: FDA-Public Use
  Company Number: NL-BAXTER-2011BH029131

PATIENT
  Age: 61 Year
  Sex: Female

DRUGS (4)
  1. FLUOROURACIL [Suspect]
     Indication: BREAST CANCER
     Dosage: 850MG 1 IN 3 WEEKS I.V.
     Route: 042
     Dates: start: 20090923, end: 20100106
  2. DOXORUBICIN HCL [Suspect]
     Indication: BREAST CANCER
     Dosage: 85MG 1 IN 3 WEEKS I.V.
     Route: 042
     Dates: start: 20090923, end: 20101006
  3. CYCLOPHOSPHAMIDE [Suspect]
     Indication: BREAST CANCER
     Dosage: 850MG 1 IN 3 WEEKS I.V.
     Route: 042
     Dates: start: 20090923, end: 20100106
  4. TAMOXIFEN CITRATE [Suspect]
     Indication: BREAST CANCER
     Dosage: 20MGQD
     Route: 048
     Dates: start: 20100120, end: 20110407

REACTIONS (3)
  - BLOOD TRIGLYCERIDES INCREASED [None]
  - HYPERCHOLESTEROLAEMIA [None]
  - TRANSIENT ISCHAEMIC ATTACK [None]
